FAERS Safety Report 10066276 (Version 1)
Quarter: 2014Q2

REPORT INFORMATION
  Report Type: Spontaneous
  Country: ES (occurrence: ES)
  Receive Date: 20140408
  Receipt Date: 20140408
  Transmission Date: 20141212
  Serious: Yes (Death)
  Sender: FDA-Public Use
  Company Number: ES-CELGENEUS-144-21660-14035190

PATIENT
  Age: 44 Year
  Sex: Female

DRUGS (6)
  1. ABRAXANE [Suspect]
     Indication: INFLAMMATORY CARCINOMA OF BREAST STAGE IV
     Dosage: 260 MILLIGRAM/SQ. METER
     Route: 041
     Dates: start: 20120315, end: 20130414
  2. GEMZAR [Concomitant]
     Indication: BREAST CANCER METASTATIC
     Dosage: .0476 GRAM
     Route: 065
     Dates: start: 201206, end: 20130414
  3. TRASTUZUMAB [Concomitant]
     Indication: BREAST CANCER METASTATIC
     Dosage: 6 MILLIGRAM/KILOGRAM
     Route: 065
     Dates: start: 20120315, end: 20130414
  4. TRASTUZUMAB [Concomitant]
     Route: 065
     Dates: start: 2005, end: 2009
  5. TRASTUZUMAB [Concomitant]
     Route: 065
     Dates: start: 2010
  6. ACETAMINOPHEN [Concomitant]
     Indication: BONE PAIN
     Route: 065

REACTIONS (4)
  - Inflammatory carcinoma of breast stage IV [Fatal]
  - Haematotoxicity [Unknown]
  - Musculoskeletal discomfort [Unknown]
  - Neuropathy peripheral [Unknown]
